FAERS Safety Report 15791461 (Version 1)
Quarter: 2019Q1

REPORT INFORMATION
  Report Type: Spontaneous
  Country: US (occurrence: US)
  Receive Date: 20190104
  Receipt Date: 20190104
  Transmission Date: 20190417
  Serious: Yes (Other)
  Sender: FDA-Public Use
  Company Number: US-009507513-1812USA012576

PATIENT
  Sex: Male

DRUGS (1)
  1. INTEGRILIN [Suspect]
     Active Substance: EPTIFIBATIDE
     Indication: ANTIPLATELET THERAPY
     Dosage: 2.0 MICROGRAM/KG/MIN (1.0 MICROGRAM/KG/MIN FOR CREATININE CLEARANCE {50 ML/MIN)
     Route: 042

REACTIONS (1)
  - Haematochezia [Unknown]
